FAERS Safety Report 8133271-9 (Version None)
Quarter: 2012Q1

REPORT INFORMATION
  Report Type: 
  Country: None (occurrence: None)
  Receive Date: 20120213
  Receipt Date: 20120207
  Transmission Date: 20120608
  Serious: Yes (Life-Threatening, Hospitalization, Other)
  Sender: FDA-Public Use
  Company Number: US-CELGENEUS-163-21880-11050977

PATIENT
  Sex: Male
  Weight: 89.177 kg

DRUGS (38)
  1. REVLIMID [Suspect]
     Indication: MULTIPLE MYELOMA
     Dosage: 25 MILLIGRAM
     Route: 048
     Dates: start: 20100501
  2. REVLIMID [Suspect]
     Dosage: 10 MILLIGRAM
     Route: 048
     Dates: start: 20110316, end: 20110413
  3. PREDNISONE TAB [Concomitant]
     Dosage: 5 MILLIGRAM
     Route: 048
     Dates: start: 20100625
  4. KLOR-CON [Concomitant]
     Dosage: 20 MILLIEQUIVALENTS
     Route: 065
  5. PYRIDOXINE HCL [Concomitant]
     Dosage: 100 MILLIGRAM
     Route: 048
  6. SENNA [Concomitant]
     Dosage: 1 TABLET
     Route: 048
  7. AREDIA [Concomitant]
     Route: 065
  8. ALPHA-LIPOIC ACID [Concomitant]
     Dosage: 400 MILLIGRAM
     Route: 048
  9. PREPARATION H [Concomitant]
     Route: 065
  10. REVLIMID [Suspect]
     Dosage: 10 MILLIGRAM
     Route: 048
     Dates: start: 20110201
  11. VITAMIN B COMPLEX CAP [Concomitant]
     Route: 065
  12. SENOKOT [Concomitant]
     Dosage: 8.6/50MG, 2 TABLETS
     Route: 048
  13. COUMADIN [Concomitant]
     Indication: ATRIAL FIBRILLATION
     Dosage: 2.5 MILLIGRAM
     Route: 048
  14. ARMODAFINIL [Concomitant]
     Dosage: 200 MILLIGRAM
     Route: 048
     Dates: start: 20110124
  15. NEURONTIN [Concomitant]
     Dosage: 300 MILLIGRAM
     Route: 048
  16. ACYCLOVIR [Concomitant]
     Indication: PROPHYLAXIS
     Dosage: 800 MILLIGRAM
     Route: 065
     Dates: start: 20110124
  17. OXYCODONE HCL [Concomitant]
     Dosage: 6 MILLIGRAM
     Route: 065
  18. KEFLEX [Concomitant]
     Dosage: 500 MILLIGRAM
     Route: 048
  19. REVLIMID [Suspect]
     Dosage: 5 MILLIGRAM
     Route: 048
     Dates: start: 20110101
  20. OXYCODONE HCL [Concomitant]
     Dosage: 5 MILLIGRAM
     Route: 048
  21. PREVACID [Concomitant]
     Dosage: 30 MILLIGRAM
     Route: 048
  22. CIPROFLOXACIN [Concomitant]
     Dosage: 500 MILLIGRAM
     Route: 048
     Dates: start: 20110124
  23. MIRALAX [Concomitant]
     Dosage: 17 GRAM
     Route: 048
  24. COLACE [Concomitant]
     Dosage: 100 MILLIGRAM
     Route: 048
  25. LASIX [Concomitant]
     Dosage: 20 MILLIGRAM
     Route: 048
  26. ALLOPURINOL [Concomitant]
     Dosage: 300 MILLIGRAM
     Route: 065
  27. HALOPERIDOL [Concomitant]
     Dosage: 1 MILLIGRAM
     Route: 065
  28. MAGNESIUM OXIDE [Concomitant]
     Dosage: 400 MILLIGRAM
     Route: 048
  29. PREDNISONE TAB [Concomitant]
     Dosage: 10 MILLIGRAM
     Route: 065
     Dates: start: 20100423
  30. FOLIC ACID [Concomitant]
     Dosage: 400 MICROGRAM
     Route: 065
  31. FOLIC ACID [Concomitant]
     Dosage: 1 GRAM
     Route: 065
  32. KLOR-CON [Concomitant]
     Dosage: 20 MILLIEQUIVALENTS
     Route: 065
  33. MELPHALAN HYDROCHLORIDE [Concomitant]
     Route: 065
     Dates: start: 20100423
  34. MELPHALAN HYDROCHLORIDE [Concomitant]
     Dosage: 14 MILLIGRAM
     Route: 048
     Dates: start: 20100625
  35. KEFLEX [Concomitant]
     Dosage: 500 MILLIGRAM
     Route: 048
  36. ASPIRIN [Concomitant]
     Dosage: 81 MILLIGRAM
     Route: 065
  37. METOCLOPRAMIDE [Concomitant]
     Dosage: 50 MILLIGRAM
     Route: 065
  38. TUCKS [Concomitant]
     Route: 065

REACTIONS (3)
  - PANCYTOPENIA [None]
  - HAEMORRHOIDAL HAEMORRHAGE [None]
  - MULTIPLE MYELOMA [None]
